FAERS Safety Report 21897466 (Version 2)
Quarter: 2023Q1

REPORT INFORMATION
  Report Type: Spontaneous
  Country: US (occurrence: US)
  Receive Date: 20230123
  Receipt Date: 20230227
  Transmission Date: 20230418
  Serious: Yes (Hospitalization, Other)
  Sender: FDA-Public Use
  Company Number: US-PFIZER INC-202300026557

PATIENT
  Sex: Female

DRUGS (1)
  1. AZITHROMYCIN [Suspect]
     Active Substance: AZITHROMYCIN
     Dosage: 250 MG

REACTIONS (9)
  - Near death experience [Unknown]
  - Abscess [Unknown]
  - Dyspnoea [Unknown]
  - Gait disturbance [Unknown]
  - Drug intolerance [Unknown]
  - Confusional state [Unknown]
  - Drug ineffective [Unknown]
  - Gastrointestinal disorder [Unknown]
  - Drooling [Unknown]
